FAERS Safety Report 19613560 (Version 1)
Quarter: 2021Q3

REPORT INFORMATION
  Report Type: Spontaneous
  Country: US (occurrence: US)
  Receive Date: 20210727
  Receipt Date: 20210727
  Transmission Date: 20211014
  Serious: Yes (Other)
  Sender: FDA-Public Use
  Company Number: US-SA-2021SA245845

PATIENT
  Age: 51 Year
  Sex: Male

DRUGS (2)
  1. ZANTAC [Suspect]
     Active Substance: RANITIDINE HYDROCHLORIDE
     Indication: HYPERCHLORHYDRIA
     Dosage: 75 MG, QD
     Dates: end: 201910
  2. ZANTAC [Suspect]
     Active Substance: RANITIDINE HYDROCHLORIDE
     Indication: DYSPEPSIA
     Dosage: 25 MG, QD
     Dates: start: 199401

REACTIONS (7)
  - Renal cancer stage IV [Unknown]
  - Lymphoma [Unknown]
  - Lung carcinoma cell type unspecified stage IV [Unknown]
  - Adrenal gland cancer [Unknown]
  - Pancreatic carcinoma stage IV [Unknown]
  - Colon cancer stage IV [Unknown]
  - Benign spleen tumour [Unknown]

NARRATIVE: CASE EVENT DATE: 20101001
